FAERS Safety Report 8493224-8 (Version None)
Quarter: 2012Q3

REPORT INFORMATION
  Report Type: 
  Country: None (occurrence: None)
  Receive Date: 20120706
  Receipt Date: 20120629
  Transmission Date: 20120928
  Serious: Yes (Hospitalization, Other)
  Sender: FDA-Public Use
  Company Number: PHEH2012US012836

PATIENT
  Sex: Female
  Weight: 87.54 kg

DRUGS (16)
  1. GILENYA [Suspect]
     Indication: MULTIPLE SCLEROSIS
     Dosage: 0.5 MG, QD
     Route: 048
  2. ATROVENT [Concomitant]
  3. TRAZODONE HCL [Concomitant]
     Dosage: 150 MG, QHS
     Route: 048
  4. AMANTADINE HCL [Concomitant]
     Dosage: 100 MG, QD
     Route: 048
  5. PROVIGIL [Concomitant]
     Dosage: 200 MG, QD
     Route: 048
  6. SYNTHROID [Concomitant]
  7. KEPPRA [Concomitant]
  8. TOPAMAX [Concomitant]
     Dosage: 400 MG, UNK
     Route: 048
  9. ALBUTEROL [Concomitant]
     Dosage: UNK
  10. LASIX [Concomitant]
     Indication: OEDEMA
     Dosage: 20 MG, PRN
     Route: 048
  11. PROZAC [Concomitant]
     Dosage: 20 MG, UNK
     Route: 048
  12. VALIUM [Concomitant]
     Indication: MUSCLE SPASMS
     Dosage: 2 DF, Q12H
     Route: 048
  13. BYETTA [Concomitant]
     Indication: DIABETES MELLITUS
  14. THYROID TAB [Concomitant]
     Dosage: 75 MG, UNK
     Route: 048
  15. GABAPENTIN [Concomitant]
     Dosage: 300 MG, QHS
     Route: 048
  16. ADDERALL 5 [Concomitant]
     Dosage: 4 DF, QD (2 TABLET IN MORNING AND 2 AT NOON)
     Route: 048

REACTIONS (21)
  - SOMNOLENCE [None]
  - BLOOD THYROID STIMULATING HORMONE DECREASED [None]
  - BRAIN OEDEMA [None]
  - BRONCHIAL HYPERREACTIVITY [None]
  - CONVULSION [None]
  - FALL [None]
  - POSTERIOR REVERSIBLE ENCEPHALOPATHY SYNDROME [None]
  - CONFUSIONAL STATE [None]
  - ELECTROENCEPHALOGRAM ABNORMAL [None]
  - VERY LOW DENSITY LIPOPROTEIN DECREASED [None]
  - HEADACHE [None]
  - VISUAL IMPAIRMENT [None]
  - MENTAL STATUS CHANGES [None]
  - PETECHIAE [None]
  - CREATININE RENAL CLEARANCE DECREASED [None]
  - SPEECH DISORDER [None]
  - ASTHENIA [None]
  - LABILE HYPERTENSION [None]
  - BLOOD ALBUMIN DECREASED [None]
  - COGNITIVE DISORDER [None]
  - CLUMSINESS [None]
